FAERS Safety Report 12139115 (Version 1)
Quarter: 2016Q1

REPORT INFORMATION
  Report Type: Spontaneous
  Country: US (occurrence: US)
  Receive Date: 20160302
  Receipt Date: 20160302
  Transmission Date: 20160526
  Serious: Yes (Hospitalization, Other)
  Sender: FDA-Public Use
  Company Number: US-TEVA-639114USA

PATIENT
  Age: 2 Year
  Sex: Male

DRUGS (3)
  1. BUDESONIDE. [Suspect]
     Active Substance: BUDESONIDE
     Indication: PNEUMONIA
  2. PREDNISOLONE. [Suspect]
     Active Substance: PREDNISOLONE
     Route: 048
     Dates: end: 20160108
  3. BUDESONIDE. [Suspect]
     Active Substance: BUDESONIDE
     Indication: ASTHMA
     Dosage: 0.5MG/2ML
     Dates: start: 201512

REACTIONS (6)
  - Pneumonia [Unknown]
  - Mood swings [Unknown]
  - Hallucination [Unknown]
  - Decreased appetite [Unknown]
  - Confusional state [Unknown]
  - Asthma [Unknown]

NARRATIVE: CASE EVENT DATE: 2015
